FAERS Safety Report 5340353-3 (Version None)
Quarter: 2007Q2

REPORT INFORMATION
  Report Type: 
  Country: None (occurrence: None)
  Receive Date: 20070531
  Receipt Date: 20070525
  Transmission Date: 20071010
  Serious: Yes (Other)
  Sender: FDA-Public Use
  Company Number: BE-ASTRAZENECA-2006AC02149

PATIENT
  Age: 887 Month
  Sex: Female
  Weight: 68.2 kg

DRUGS (2)
  1. FASLODEX [Suspect]
     Indication: BREAST CANCER
     Route: 030
     Dates: start: 20060601, end: 20060724
  2. FASLODEX [Suspect]
     Indication: DISEASE PROGRESSION
     Route: 030
     Dates: start: 20060601, end: 20060724

REACTIONS (6)
  - ARTHRALGIA [None]
  - DECREASED APPETITE [None]
  - FATIGUE [None]
  - HEADACHE [None]
  - HOT FLUSH [None]
  - NAUSEA [None]
